FAERS Safety Report 7418078-X (Version None)
Quarter: 2011Q2

REPORT INFORMATION
  Report Type: 
  Country: None (occurrence: None)
  Receive Date: 20110415
  Receipt Date: 20110411
  Transmission Date: 20111010
  Serious: Yes (Other)
  Sender: FDA-Public Use
  Company Number: US-B.I. PHARMACEUTICALS,INC./RIDGEFIELD-2011-BP-03359BP

PATIENT
  Sex: Male

DRUGS (16)
  1. PRADAXA [Suspect]
     Indication: CARDIAC DISORDER
     Dosage: 300 MG
     Route: 048
     Dates: start: 20110129
  2. BUMETANIDE [Concomitant]
     Indication: FLUID RETENTION
     Dosage: 1 MG
     Route: 048
  3. LIPITOR [Concomitant]
     Dosage: 80 MG
     Route: 048
  4. PRIMIDOLOL [Concomitant]
     Indication: CARDIAC DISORDER
     Dosage: 6.25 MG
     Route: 048
  5. ASPIRIN [Concomitant]
     Indication: PROPHYLAXIS
     Dosage: 81 MG
     Route: 048
  6. PROTONIX [Concomitant]
     Indication: GASTROOESOPHAGEAL REFLUX DISEASE
     Dosage: 80 MG
     Route: 048
  7. FLONASE [Concomitant]
     Indication: NASAL POLYPS
     Dosage: 7.5 MG
     Route: 045
  8. CARVEDILOL [Concomitant]
     Dosage: 12.5 MG
  9. COMBIVENT [Suspect]
     Indication: CHRONIC OBSTRUCTIVE PULMONARY DISEASE
     Dosage: 8 PUF
     Route: 055
     Dates: start: 20020101
  10. SIMVASTATIN [Concomitant]
     Indication: BLOOD CHOLESTEROL INCREASED
     Dosage: 80 MG
     Route: 048
  11. CPAP/O2 [Concomitant]
     Indication: SLEEP APNOEA SYNDROME
  12. LANOXIN [Concomitant]
     Indication: CARDIAC DISORDER
     Dosage: 125 MG
     Route: 048
  13. KLOR-CON [Concomitant]
     Indication: PROPHYLAXIS
     Dosage: 10 MEQ
     Route: 048
  14. TRILIPIX [Concomitant]
     Indication: BLOOD CHOLESTEROL INCREASED
     Dosage: 135 MG
     Route: 048
  15. AMBIEN [Concomitant]
     Indication: INSOMNIA
     Dosage: 10 MG
     Route: 048
  16. CPAP/O2 [Concomitant]
     Indication: PROPHYLAXIS
     Dosage: 81 NR
     Route: 045

REACTIONS (7)
  - BLOOD PRESSURE INCREASED [None]
  - ASTHENIA [None]
  - CARDIAC FLUTTER [None]
  - COUGH [None]
  - MALAISE [None]
  - SINUSITIS [None]
  - MYOCARDIAL INFARCTION [None]
